FAERS Safety Report 4987600-5 (Version None)
Quarter: 2006Q2

REPORT INFORMATION
  Report Type: 
  Country: None (occurrence: None)
  Receive Date: 20060427
  Receipt Date: 20060427
  Transmission Date: 20061013
  Serious: Yes (Other)
  Sender: FDA-Public Use
  Company Number: None

PATIENT
  Age: 2 Day
  Sex: Male

DRUGS (1)
  1. LIDOCAINE AND PRILOCAINE [Suspect]
     Indication: CIRCUMCISION
     Dosage: 2.5GRAMS  ONCE TOP
     Route: 061
     Dates: start: 20051229, end: 20051229

REACTIONS (3)
  - POST PROCEDURAL COMPLICATION [None]
  - SCROTAL ERYTHEMA [None]
  - SCROTAL IRRITATION [None]
